FAERS Safety Report 20995321 (Version 5)
Quarter: 2023Q1

REPORT INFORMATION
  Report Type: Report from Study
  Country: US (occurrence: US)
  Receive Date: 20220622
  Receipt Date: 20230106
  Transmission Date: 20230417
  Serious: Yes (Other)
  Sender: FDA-Public Use
  Company Number: US-BoehringerIngelheim-2022-BI-154062

PATIENT
  Age: 75 Year
  Sex: Female

DRUGS (3)
  1. OFEV [Suspect]
     Active Substance: NINTEDANIB
     Indication: Idiopathic pulmonary fibrosis
     Route: 048
     Dates: start: 20220204
  2. OFEV [Suspect]
     Active Substance: NINTEDANIB
     Indication: Interstitial lung disease
     Route: 048
     Dates: start: 20220507
  3. OFEV [Suspect]
     Active Substance: NINTEDANIB
     Route: 048

REACTIONS (13)
  - Glaucoma [Unknown]
  - Blindness transient [Not Recovered/Not Resolved]
  - Cataract [Unknown]
  - Nausea [Not Recovered/Not Resolved]
  - Vomiting [Not Recovered/Not Resolved]
  - Ophthalmic migraine [Not Recovered/Not Resolved]
  - Faeces soft [Recovered/Resolved]
  - Dyspepsia [Unknown]
  - Dyspepsia [Unknown]
  - Constipation [Unknown]
  - Increased appetite [Not Recovered/Not Resolved]
  - Food intolerance [Unknown]
  - Headache [Not Recovered/Not Resolved]
